FAERS Safety Report 5914922-3 (Version None)
Quarter: 2008Q4

REPORT INFORMATION
  Report Type: 
  Country: None (occurrence: None)
  Receive Date: 20081010
  Receipt Date: 20081002
  Transmission Date: 20090506
  Serious: Yes (Death)
  Sender: FDA-Public Use
  Company Number: BR-ELI_LILLY_AND_COMPANY-BR200810000416

PATIENT
  Age: 84 Year
  Sex: Male

DRUGS (1)
  1. ALIMTA [Suspect]
     Indication: LUNG NEOPLASM MALIGNANT
     Dosage: 500 MG/M2, OTHER
     Route: 051

REACTIONS (3)
  - ACUTE PULMONARY OEDEMA [None]
  - ARRHYTHMIA [None]
  - RESPIRATORY FAILURE [None]
